FAERS Safety Report 24327542 (Version 1)
Quarter: 2024Q3

REPORT INFORMATION
  Report Type: Spontaneous
  Country: US (occurrence: None)
  Receive Date: 20240916
  Receipt Date: 20240916
  Transmission Date: 20241016
  Serious: Yes (Hospitalization)
  Sender: Public
  Company Number: None

PATIENT
  Sex: Female

DRUGS (2)
  1. CAPECITABINE [Suspect]
     Active Substance: CAPECITABINE
     Indication: Colon cancer
     Dosage: 1000MG TWICE DAILY ORAL?
     Route: 048
     Dates: start: 202407
  2. CAPECITABINE [Suspect]
     Active Substance: CAPECITABINE
     Indication: Colon cancer
     Dosage: 450MG TWICE DAILY ORAL
     Route: 048
     Dates: start: 202407

REACTIONS (5)
  - Diarrhoea [None]
  - Abdominal pain [None]
  - Dyspepsia [None]
  - Skin discolouration [None]
  - Skin exfoliation [None]
